FAERS Safety Report 7814479-6 (Version None)
Quarter: 2011Q4

REPORT INFORMATION
  Report Type: 
  Country: None (occurrence: None)
  Receive Date: 20111014
  Receipt Date: 20111007
  Transmission Date: 20120403
  Serious: Yes (Other)
  Sender: FDA-Public Use
  Company Number: PHHY2011FR89374

PATIENT
  Age: 90 Year
  Sex: Female

DRUGS (1)
  1. RASILEZ [Suspect]
     Dosage: 300 MG, UNK

REACTIONS (1)
  - RENAL FAILURE [None]
